FAERS Safety Report 11365596 (Version 1)
Quarter: 2015Q3

REPORT INFORMATION
  Report Type: Other
  Country: DE (occurrence: DE)
  Receive Date: 20150811
  Receipt Date: 20150811
  Transmission Date: 20151125
  Serious: Yes (Other)
  Sender: FDA-Public Use
  Company Number: DE-MYLANLABS-2015M1026369

PATIENT

DRUGS (6)
  1. LYRICA [Suspect]
     Active Substance: PREGABALIN
     Indication: DEPRESSION
     Dosage: 75 [MG/D ]/ AND ANXIETY DISORDER
     Route: 064
     Dates: start: 20140917, end: 20150605
  2. BISOPROLOL [Concomitant]
     Active Substance: BISOPROLOL
     Indication: SINUS TACHYCARDIA
     Dosage: ONLY IF REQUIRED
     Route: 064
     Dates: start: 20140917, end: 20150605
  3. VENLAFAXINE [Suspect]
     Active Substance: VENLAFAXINE HYDROCHLORIDE
     Indication: DEPRESSION
     Dosage: 225 [MG/D ]/ AND ANXIETY DISORDER
     Route: 064
     Dates: start: 20140917, end: 20150605
  4. FOLS?URE [Concomitant]
     Indication: PROPHYLAXIS OF NEURAL TUBE DEFECT
     Dosage: UNK
     Route: 064
  5. TIANEURAX [Suspect]
     Active Substance: TIANEPTINE SODIUM
     Indication: DEPRESSION
     Dosage: 25 [MG/D ]/ AND ANXIETY DISORDER
     Route: 064
     Dates: start: 20140917, end: 20150605
  6. VOMEX A SUPPOSITORIEN [Concomitant]
     Indication: VOMITING IN PREGNANCY
     Dosage: NAUSEA AND VOMITIUNG
     Route: 064

REACTIONS (2)
  - Agitation neonatal [Recovered/Resolved]
  - Foetal exposure during pregnancy [Recovered/Resolved]

NARRATIVE: CASE EVENT DATE: 20150605
